FAERS Safety Report 5118513-6 (Version None)
Quarter: 2006Q4

REPORT INFORMATION
  Report Type: 
  Country: None (occurrence: None)
  Receive Date: 20061002
  Receipt Date: 20060921
  Transmission Date: 20070319
  Serious: Yes (Death, Life-Threatening, Other)
  Sender: FDA-Public Use
  Company Number: PHBS2006AR14603

PATIENT
  Age: 53 Year
  Sex: Male

DRUGS (2)
  1. CYCLOSPORINE [Suspect]
     Indication: LIVER TRANSPLANT
     Route: 065
  2. TACROLIMUS [Concomitant]
     Indication: LIVER TRANSPLANT

REACTIONS (3)
  - APHASIA [None]
  - GASTROINTESTINAL HAEMORRHAGE [None]
  - LIVER TRANSPLANT REJECTION [None]
